FAERS Safety Report 9346007 (Version 1)
Quarter: 2013Q2

REPORT INFORMATION
  Report Type: Spontaneous
  Country: GB (occurrence: GB)
  Receive Date: 20130613
  Receipt Date: 20130613
  Transmission Date: 20140414
  Serious: Yes (Other)
  Sender: FDA-Public Use
  Company Number: PHHY2013GB059130

PATIENT
  Sex: 0

DRUGS (2)
  1. CLONIDINE [Suspect]
     Indication: ATTENTION DEFICIT/HYPERACTIVITY DISORDER
     Dosage: 25 UG, BID
     Route: 048
     Dates: start: 200306
  2. CLONIDINE [Suspect]
     Indication: OFF LABEL USE

REACTIONS (3)
  - Attention deficit/hyperactivity disorder [Unknown]
  - Condition aggravated [Unknown]
  - Drug withdrawal syndrome [Unknown]
